FAERS Safety Report 6734223-3 (Version None)
Quarter: 2010Q2

REPORT INFORMATION
  Report Type: 
  Country: None (occurrence: None)
  Receive Date: 20100520
  Receipt Date: 20100507
  Transmission Date: 20101027
  Serious: Yes (Hospitalization)
  Sender: FDA-Public Use
  Company Number: PHHY2010TH29264

PATIENT
  Age: 31 Year
  Sex: Female

DRUGS (3)
  1. GLEEVEC [Suspect]
     Indication: GASTROINTESTINAL STROMAL TUMOUR
     Dosage: 400 MG, QD
     Dates: start: 20100319, end: 20100331
  2. GLEEVEC [Interacting]
     Dosage: 400 MG, QD
     Dates: start: 20100421, end: 20100506
  3. PROPYLTHIOURACIL [Interacting]
     Indication: HYPERTHYROIDISM
     Dosage: UNK

REACTIONS (5)
  - DRUG INTERACTION [None]
  - HYPERTENSIVE CRISIS [None]
  - RASH [None]
  - RASH PRURITIC [None]
  - TACHYCARDIA [None]
